FAERS Safety Report 9181759 (Version 1)
Quarter: 2013Q1

REPORT INFORMATION
  Report Type: Spontaneous
  Country: US (occurrence: US)
  Receive Date: 20130322
  Receipt Date: 20130322
  Transmission Date: 20140127
  Serious: Yes (Hospitalization)
  Sender: FDA-Public Use
  Company Number: US-BAYER-2013-034254

PATIENT
  Age: 37 Year
  Sex: Female

DRUGS (4)
  1. OCELLA [Suspect]
  2. DEXAMETHASONE [Concomitant]
     Dosage: 4 MG, UNK
  3. TAMOXIFEN [Concomitant]
     Dosage: 10 MG, UNK
  4. HERCEPTIN [Concomitant]

REACTIONS (3)
  - Jugular vein thrombosis [None]
  - Subclavian vein thrombosis [None]
  - Axillary vein thrombosis [None]
